FAERS Safety Report 8951866 (Version 2)
Quarter: 2012Q4

REPORT INFORMATION
  Report Type: 
  Country: JP (occurrence: JP)
  Receive Date: 20121204
  Receipt Date: 20121207
  Transmission Date: 20130627
  Serious: Yes (Hospitalization)
  Sender: FDA-Public Use
  Company Number: JP-ROCHE-1087284

PATIENT
  Age: 3 Year
  Sex: Male
  Weight: 11 kg

DRUGS (6)
  1. ACTEMRA [Suspect]
     Indication: JUVENILE ARTHRITIS
     Route: 041
     Dates: start: 20120621, end: 2012
  2. ACTEMRA [Suspect]
     Indication: JUVENILE ARTHRITIS
     Route: 041
     Dates: start: 2012
  3. PREDNISOLONE [Concomitant]
     Indication: JUVENILE ARTHRITIS
     Route: 048
     Dates: end: 2012
  4. PREDNISOLONE [Concomitant]
     Indication: JUVENILE ARTHRITIS
     Route: 048
     Dates: start: 2012, end: 20121115
  5. MARZULENE-S [Concomitant]
     Indication: PROPHYLAXIS
     Route: 048
     Dates: start: 20111026
  6. BAKTAR [Concomitant]
     Indication: PROPHYLAXIS
     Dosage: Dosage during a day: 0.5g twice
     Route: 048
     Dates: start: 20111109

REACTIONS (2)
  - C-reactive protein increased [Recovered/Resolved]
  - Juvenile idiopathic arthritis [Recovering/Resolving]
